FAERS Safety Report 16758065 (Version 2)
Quarter: 2019Q3

REPORT INFORMATION
  Report Type: Spontaneous
  Country: UA (occurrence: UA)
  Receive Date: 20190830
  Receipt Date: 20190917
  Transmission Date: 20191005
  Serious: Yes (Death, Disabling, Other)
  Sender: FDA-Public Use
  Company Number: UA-SA-2019SA236862

PATIENT
  Sex: Female

DRUGS (1)
  1. CEREZYME [Suspect]
     Active Substance: IMIGLUCERASE
     Indication: GAUCHER^S DISEASE TYPE III
     Dosage: 60 U/KG, QOW
     Route: 042

REACTIONS (8)
  - Condition aggravated [Unknown]
  - Therapeutic response decreased [Unknown]
  - Sedation [Unknown]
  - Neuropathy peripheral [Unknown]
  - Seizure [Unknown]
  - Disease progression [Fatal]
  - Disability [Unknown]
  - Hepatobiliary disease [Unknown]
